FAERS Safety Report 5565555-2 (Version None)
Quarter: 2007Q4

REPORT INFORMATION
  Report Type: 
  Country: None (occurrence: None)
  Receive Date: 20071218
  Receipt Date: 20050905
  Transmission Date: 20080405
  Serious: Yes (Death)
  Sender: FDA-Public Use
  Company Number: DE-ROCHE-418304

PATIENT
  Age: 53 Year
  Sex: Female
  Weight: 70 kg

DRUGS (3)
  1. VALCYTE [Suspect]
     Route: 048
     Dates: start: 20050201, end: 20050211
  2. CHEMOTHERAPY DRUG [Concomitant]
     Dosage: DRUG REPORTED: CHEMOTHERAPEUTICS
     Route: 048
  3. CHEMOTHERAPY DRUG [Concomitant]
     Route: 048

REACTIONS (3)
  - DEATH [None]
  - LEUKOPENIA [None]
  - THROMBOCYTOPENIA [None]
